FAERS Safety Report 7444419-3 (Version None)
Quarter: 2011Q2

REPORT INFORMATION
  Report Type: 
  Country: None (occurrence: None)
  Receive Date: 20110429
  Receipt Date: 20110419
  Transmission Date: 20111010
  Serious: Yes (Other)
  Sender: FDA-Public Use
  Company Number: US-BAYER-2011-012006

PATIENT
  Age: 32 Year
  Sex: Female
  Weight: 68.481 kg

DRUGS (3)
  1. MIRENA [Suspect]
     Indication: CONTRACEPTION
     Dosage: UNK
     Dates: start: 20110112, end: 20110128
  2. MIRENA [Suspect]
  3. MOTRIN [Concomitant]
     Indication: ANALGESIC THERAPY
     Dosage: 600 MG, UNK

REACTIONS (2)
  - MEDICAL DEVICE COMPLICATION [None]
  - UTERINE PERFORATION [None]
